FAERS Safety Report 11813770 (Version 1)
Quarter: 2015Q4

REPORT INFORMATION
  Report Type: Spontaneous
  Country: US (occurrence: None)
  Receive Date: 20151208
  Receipt Date: 20151208
  Transmission Date: 20160305
  Serious: Yes (Other)
  Sender: FDA-Public Use
  Company Number: None

PATIENT
  Age: 19 Year
  Sex: Female
  Weight: 53.98 kg

DRUGS (1)
  1. BUPRENORPHINE AND NALOXONE [Suspect]
     Active Substance: BUPRENORPHINE\NALOXONE
     Indication: DEPENDENCE
     Route: 060
     Dates: start: 20150804, end: 20151207

REACTIONS (2)
  - Constipation [None]
  - Exposure during pregnancy [None]

NARRATIVE: CASE EVENT DATE: 20151207
